FAERS Safety Report 6087953-3 (Version None)
Quarter: 2009Q1

REPORT INFORMATION
  Report Type: 
  Country: None (occurrence: None)
  Receive Date: 20090219
  Receipt Date: 20090211
  Transmission Date: 20090719
  Serious: Yes (Hospitalization)
  Sender: FDA-Public Use
  Company Number: 2009SP000417

PATIENT
  Age: 44 Year
  Sex: Male
  Weight: 71.7 kg

DRUGS (7)
  1. XOPENEX [Suspect]
     Indication: ASTHMA
     Dosage: 0.63 MG/3ML;BID;INHALATION, 0.63 MG/3ML;Q4H;INHALATION
     Route: 055
     Dates: end: 20090101
  2. XOPENEX [Suspect]
     Indication: ASTHMA
     Dosage: 0.63 MG/3ML;BID;INHALATION, 0.63 MG/3ML;Q4H;INHALATION
     Route: 055
     Dates: start: 20090101
  3. OMNARIS NASAL SPRAY [Concomitant]
  4. .. [Concomitant]
  5. ZYRTEC [Concomitant]
  6. PEPCID [Concomitant]
  7. PREV MEDS [Concomitant]

REACTIONS (10)
  - APHONIA [None]
  - CHEST PAIN [None]
  - DIZZINESS [None]
  - DYSPNOEA [None]
  - HYPERHIDROSIS [None]
  - MUSCLE FATIGUE [None]
  - OCULAR HYPERAEMIA [None]
  - SINUSITIS [None]
  - TREMOR [None]
  - UNEVALUABLE EVENT [None]
